FAERS Safety Report 23509151 (Version 2)
Quarter: 2024Q2

REPORT INFORMATION
  Report Type: Report from Study
  Country: CA (occurrence: CA)
  Receive Date: 20240210
  Receipt Date: 20240418
  Transmission Date: 20240715
  Serious: Yes (Death, Hospitalization)
  Sender: FDA-Public Use
  Company Number: CA-ABBVIE-5625049

PATIENT
  Age: 78 Year
  Sex: Male

DRUGS (2)
  1. LUPRON DEPOT [Suspect]
     Active Substance: LEUPROLIDE ACETATE
     Indication: Prostate cancer
     Route: 030
     Dates: start: 20210929, end: 20240201
  2. TAMSULOSIN [Concomitant]
     Active Substance: TAMSULOSIN
     Indication: Product used for unknown indication

REACTIONS (4)
  - Death [Fatal]
  - Asthenia [Unknown]
  - Decreased appetite [Unknown]
  - Terminal state [Unknown]

NARRATIVE: CASE EVENT DATE: 20240324
